FAERS Safety Report 4878383-8 (Version None)
Quarter: 2005Q4

REPORT INFORMATION
  Report Type: 
  Country: None (occurrence: None)
  Receive Date: 20051209
  Receipt Date: 20050822
  Transmission Date: 20060501
  Serious: No
  Sender: FDA-Public Use
  Company Number: SUS1-2005-00638

PATIENT
  Age: 75 Year
  Sex: Female
  Weight: 72.6 kg

DRUGS (12)
  1. FOSRENOL [Suspect]
     Indication: HYPERPHOSPHATAEMIA
     Dosage: 500 MG, 3X/DAY:TID, ORAL
     Route: 048
     Dates: start: 20050701
  2. RENAL SOFT GEL CAPSULES [Concomitant]
  3. ZOLOFT [Concomitant]
  4. POLY-IRON FORTE (CYANOCOBALAMIN, FOLIC ACID, POLYSACCHARIDE-IRON COMPL [Concomitant]
  5. EQUALINE [Concomitant]
  6. PROCRIT [Concomitant]
  7. CALCITROL (RETINOL, ERGOCALCIFEROL) [Concomitant]
  8. BUMEX [Concomitant]
  9. ADALAT [Concomitant]
  10. WARFARIN SODIUM [Concomitant]
  11. TOPROL-XL [Concomitant]
  12. CRESTOR [Concomitant]

REACTIONS (3)
  - ABDOMINAL DISTENSION [None]
  - CONSTIPATION [None]
  - PHARMACEUTICAL PRODUCT COMPLAINT [None]
